FAERS Safety Report 24768638 (Version 1)
Quarter: 2024Q4

REPORT INFORMATION
  Report Type: Spontaneous
  Country: GB (occurrence: GB)
  Receive Date: 20241224
  Receipt Date: 20241224
  Transmission Date: 20250114
  Serious: Yes (Hospitalization, Other)
  Sender: TEVA
  Company Number: None

PATIENT
  Age: 76 Year
  Sex: Male

DRUGS (9)
  1. AZITHROMYCIN [Suspect]
     Active Substance: AZITHROMYCIN
     Indication: Product used for unknown indication
     Dosage: TIME INTERVAL: 0.33333333 WEEKS: MONDAY, WEDNESDAY AND FRIDAY
     Route: 065
  2. ALBUTEROL [Concomitant]
     Active Substance: ALBUTEROL
     Indication: Product used for unknown indication
     Dosage: ONE OR TWO PUFFS TO BE INHALED FOUR TIMES A DAY WHEN REQUIRED;  100MICROGRAMS/DOSE INHALER CFC FR...
     Route: 055
  3. ATORVASTATIN [Concomitant]
     Active Substance: ATORVASTATIN
     Indication: Product used for unknown indication
     Dosage: ONE TO BE TAKEN EACH EVENING
  4. OXYGEN [Concomitant]
     Active Substance: OXYGEN
     Indication: Product used for unknown indication
     Dosage: 2.5-3L WHEN RESTING AND 8L ON EXERTION VIA NASAL SPECS VIA COMPRESSOR
     Route: 045
  5. AproDerm Colloidal Oat cream [Concomitant]
     Indication: Product used for unknown indication
     Dosage: APPLY AS ADVISED BY OXYGEN SERVICE;   (FONTUS HEALTH LTD)
  6. CALCIUM CARBONATE\CHOLECALCIFEROL [Concomitant]
     Active Substance: CALCIUM CARBONATE\CHOLECALCIFEROL
     Indication: Product used for unknown indication
     Dosage: TAKE ONE TABLET TWICE A DAY;  1500MG/400UNIT CHEWABLE TABLETS (TEVA UK LTD)
  7. ALENDRONIC ACID [Concomitant]
     Active Substance: ALENDRONIC ACID
     Indication: Product used for unknown indication
     Dosage: 1 TABLET WEEKLY ON AN EMPTY STOMACH WITH GLASS OF WATER AND STAY UPRIGHT FOR 30 MINS SATURDAYS
  8. MORPHINE SULFATE [Concomitant]
     Active Substance: MORPHINE SULFATE
     Indication: Dyspnoea
     Dosage: 1.25-2.5 MG AS NEEDED FOR BREATHLESSNESS; 10MG/5ML ORAL SOLUTION UNIT DOSE VIALS (BOEHRINGER INGE...
     Route: 048
  9. TRELEGY ELLIPTA [Concomitant]
     Active Substance: FLUTICASONE FUROATE\UMECLIDINIUM BROMIDE\VILANTEROL TRIFENATATE
     Indication: Product used for unknown indication
     Dosage: ONE PUFF TO BE INHALED EACH DAY;  92 / 55 / 22 MICROGRAMS / DOSE DRY POWDER INHALER
     Route: 055

REACTIONS (2)
  - Infective exacerbation of chronic obstructive airways disease [Recovered/Resolved]
  - Treatment failure [Unknown]
